FAERS Safety Report 25056684 (Version 2)
Quarter: 2025Q2

REPORT INFORMATION
  Report Type: Report from Study
  Country: US (occurrence: US)
  Receive Date: 20250310
  Receipt Date: 20250421
  Transmission Date: 20250717
  Serious: No
  Sender: SANDOZ
  Company Number: US-SANDOZ-SDZ2025US014007

PATIENT
  Age: 3 Year
  Sex: Female

DRUGS (8)
  1. OMNITROPE [Suspect]
     Active Substance: SOMATROPIN
     Indication: Short stature
     Dosage: 0.4 MG, QD
     Route: 058
     Dates: start: 20250305
  2. OMNITROPE [Suspect]
     Active Substance: SOMATROPIN
     Indication: Short stature
     Dosage: 0.4 MG, QD
     Route: 058
     Dates: start: 20250305
  3. OMNITROPE [Suspect]
     Active Substance: SOMATROPIN
     Indication: Short stature
     Dosage: 0.4 MG, QD
     Route: 058
     Dates: start: 20250305
  4. OMNITROPE [Suspect]
     Active Substance: SOMATROPIN
     Indication: Short stature
     Dosage: 0.4 MG, QD
     Route: 058
     Dates: start: 20250305
  5. OMNITROPE [Suspect]
     Active Substance: SOMATROPIN
     Indication: Small for dates baby
     Dosage: 0.4 MG, QD(5 MG / 1.5 ML SOLUTION FOR INJECTION)
     Route: 058
     Dates: start: 20250304
  6. OMNITROPE [Suspect]
     Active Substance: SOMATROPIN
     Indication: Small for dates baby
     Dosage: 0.4 MG, QD(5 MG / 1.5 ML SOLUTION FOR INJECTION)
     Route: 058
     Dates: start: 20250304
  7. OMNITROPE [Suspect]
     Active Substance: SOMATROPIN
     Indication: Small for dates baby
     Dosage: 0.4 MG, QD(5 MG / 1.5 ML SOLUTION FOR INJECTION)
     Route: 058
     Dates: start: 20250304
  8. OMNITROPE [Suspect]
     Active Substance: SOMATROPIN
     Indication: Small for dates baby
     Dosage: 0.4 MG, QD(5 MG / 1.5 ML SOLUTION FOR INJECTION)
     Route: 058
     Dates: start: 20250304

REACTIONS (4)
  - Injection site discomfort [Not Recovered/Not Resolved]
  - Injection site haemorrhage [Unknown]
  - Incorrect dose administered by device [Unknown]
  - Product use in unapproved indication [Unknown]

NARRATIVE: CASE EVENT DATE: 20250301
